FAERS Safety Report 5485524-0 (Version None)
Quarter: 2007Q4

REPORT INFORMATION
  Report Type: 
  Country: None (occurrence: None)
  Receive Date: 20071010
  Receipt Date: 20071010
  Transmission Date: 20080405
  Serious: Yes (Life-Threatening, Hospitalization)
  Sender: FDA-Public Use
  Company Number: None

PATIENT
  Age: 17 Year
  Sex: Male
  Weight: 77.5651 kg

DRUGS (1)
  1. COZAAR [Suspect]
     Indication: PROTEIN URINE PRESENT
     Dosage: 25 MG TWICE A DAY
     Dates: start: 20061001, end: 20071006

REACTIONS (10)
  - ABASIA [None]
  - ASTHENIA [None]
  - CARDIAC ARREST [None]
  - CONVULSION [None]
  - DYSPNOEA [None]
  - FALL [None]
  - HYPOAESTHESIA [None]
  - MOVEMENT DISORDER [None]
  - PULSE ABSENT [None]
  - UNEVALUABLE EVENT [None]
